FAERS Safety Report 24935981 (Version 1)
Quarter: 2025Q1

REPORT INFORMATION
  Report Type: Spontaneous
  Country: GB (occurrence: GB)
  Receive Date: 20250206
  Receipt Date: 20250206
  Transmission Date: 20250409
  Serious: Yes (Other)
  Sender: TEVA
  Company Number: GB-MHRA-34542119

PATIENT

DRUGS (9)
  1. LANSOPRAZOLE [Suspect]
     Active Substance: LANSOPRAZOLE
     Indication: Product used for unknown indication
     Route: 065
     Dates: end: 202206
  2. AZELASTINE HYDROCHLORIDE [Suspect]
     Active Substance: AZELASTINE HYDROCHLORIDE
     Indication: Product used for unknown indication
     Route: 045
     Dates: end: 202405
  3. MEBEVERINE HYDROCHLORIDE [Suspect]
     Active Substance: MEBEVERINE HYDROCHLORIDE
     Indication: Product used for unknown indication
     Route: 065
     Dates: end: 202203
  4. CETIRIZINE HYDROCHLORIDE [Suspect]
     Active Substance: CETIRIZINE HYDROCHLORIDE
     Indication: Product used for unknown indication
     Route: 065
     Dates: end: 202308
  5. HYDROXYCHLOROQUINE SULFATE [Suspect]
     Active Substance: HYDROXYCHLOROQUINE SULFATE
     Indication: Product used for unknown indication
     Route: 065
     Dates: end: 202408
  6. ALVERINE CITRATE [Suspect]
     Active Substance: ALVERINE CITRATE
     Indication: Product used for unknown indication
     Route: 065
  7. ALVERINE CITRATE [Suspect]
     Active Substance: ALVERINE CITRATE
     Indication: Product used for unknown indication
     Route: 065
     Dates: end: 202205
  8. ALBUTEROL [Suspect]
     Active Substance: ALBUTEROL
     Indication: Product used for unknown indication
     Route: 055
     Dates: end: 202209
  9. ALVERINE CITRATE [Suspect]
     Active Substance: ALVERINE CITRATE
     Indication: Product used for unknown indication
     Route: 065
     Dates: end: 202207

REACTIONS (6)
  - Abdominal rigidity [Unknown]
  - Abdominal pain [Unknown]
  - Abdominal discomfort [Unknown]
  - Throat tightness [Unknown]
  - Sinus headache [Unknown]
  - Muscle spasms [Unknown]

NARRATIVE: CASE EVENT DATE: 20220501
